FAERS Safety Report 17149426 (Version 1)
Quarter: 2019Q4

REPORT INFORMATION
  Report Type: Spontaneous
  Country: BR (occurrence: BR)
  Receive Date: 20191213
  Receipt Date: 20191213
  Transmission Date: 20200122
  Serious: Yes (Other)
  Sender: FDA-Public Use
  Company Number: BR-AMGEN-BRASP2019206689

PATIENT
  Age: 72 Year
  Sex: Female

DRUGS (1)
  1. ENBREL [Suspect]
     Active Substance: ETANERCEPT
     Indication: PRODUCT USED FOR UNKNOWN INDICATION
     Dosage: UNK
     Route: 065
     Dates: end: 2017

REACTIONS (6)
  - Osteoarthritis [Unknown]
  - Rheumatoid arthritis [Unknown]
  - Metastases to lung [Unknown]
  - Malaise [Unknown]
  - Pain [Unknown]
  - Malignant neoplasm of unknown primary site [Unknown]
